FAERS Safety Report 10945516 (Version 1)
Quarter: 2015Q1

REPORT INFORMATION
  Report Type: Spontaneous
  Country: US (occurrence: None)
  Receive Date: 20150212
  Receipt Date: 20150212
  Transmission Date: 20150721
  Serious: No
  Sender: FDA-Public Use
  Company Number: TPA2011A02010

PATIENT
  Age: 79 Year
  Sex: Female
  Weight: 127.01 kg

DRUGS (8)
  1. ULORIC [Suspect]
     Active Substance: FEBUXOSTAT
     Indication: GOUT
     Route: 048
     Dates: start: 2011
  2. CHROMIUM PICOLATE (CHROMIUM PICOLINATE) [Concomitant]
  3. ARMOUR THYROID (THYROID) [Concomitant]
  4. INSULIN 70/30 (INSULIN) [Concomitant]
  5. COLCHICINE (COCHICINE) [Concomitant]
  6. PRAVASTATIN [Concomitant]
     Active Substance: PRAVASTATIN\PRAVASTATIN SODIUM
  7. OXYGEN. [Concomitant]
     Active Substance: OXYGEN
  8. PRADAXA [Concomitant]
     Active Substance: DABIGATRAN ETEXILATE MESYLATE

REACTIONS (2)
  - Oedema peripheral [None]
  - Neuralgia [None]
